FAERS Safety Report 18147173 (Version 2)
Quarter: 2020Q3

REPORT INFORMATION
  Report Type: Spontaneous
  Country: DE (occurrence: DE)
  Receive Date: 20200813
  Receipt Date: 20200819
  Transmission Date: 20201103
  Serious: Yes (Other)
  Sender: FDA-Public Use
  Company Number: NVSC2020DE222339

PATIENT
  Sex: Female

DRUGS (3)
  1. L?THYROXINE [Concomitant]
     Active Substance: LEVOTHYROXINE
     Indication: PRODUCT USED FOR UNKNOWN INDICATION
     Dosage: UNK, QD
     Route: 065
  2. GLIVEC [Suspect]
     Active Substance: IMATINIB MESYLATE
     Dosage: 400 MG, QD
     Route: 065
  3. GLIVEC [Suspect]
     Active Substance: IMATINIB MESYLATE
     Indication: CHRONIC MYELOID LEUKAEMIA
     Dosage: 400 MG, QD (FOR 2 WEEKS ONCE DAILY AND THEN PAUSING FOR 1 WEEK)
     Route: 065
     Dates: start: 2010

REACTIONS (6)
  - Mucosal dryness [Unknown]
  - Irritable bowel syndrome [Unknown]
  - Product dose omission issue [Unknown]
  - Megacolon [Unknown]
  - Diarrhoea [Unknown]
  - Gastrointestinal motility disorder [Unknown]

NARRATIVE: CASE EVENT DATE: 2013
